FAERS Safety Report 11115427 (Version 1)
Quarter: 2015Q2

REPORT INFORMATION
  Report Type: Report from Study
  Country: US (occurrence: None)
  Receive Date: 20150511
  Receipt Date: 20150511
  Transmission Date: 20150821
  Serious: Yes (Hospitalization, Other)
  Sender: FDA-Public Use
  Company Number: 2014FE01798

PATIENT
  Age: 67 Year
  Sex: Male

DRUGS (1)
  1. FIRMAGON [Suspect]
     Active Substance: DEGARELIX ACETATE
     Indication: PROSTATE CANCER
     Route: 058
     Dates: start: 20140618

REACTIONS (5)
  - Laparoscopic surgery [None]
  - Urine output decreased [None]
  - Abdominal pain [None]
  - Urinary tract obstruction [None]
  - Hypertension [None]

NARRATIVE: CASE EVENT DATE: 20140629
